FAERS Safety Report 7072991-4 (Version None)
Quarter: 2010Q4

REPORT INFORMATION
  Report Type: 
  Country: None (occurrence: None)
  Receive Date: 20101029
  Receipt Date: 20100518
  Transmission Date: 20110411
  Serious: No
  Sender: FDA-Public Use
  Company Number: A0853945A

PATIENT
  Age: 83 Year
  Sex: Male
  Weight: 88.2 kg

DRUGS (8)
  1. ADVAIR DISKUS 100/50 [Suspect]
     Indication: ASTHMA
     Dosage: 1PUFF TWICE PER DAY
     Route: 055
     Dates: start: 20100201, end: 20100201
  2. SEREVENT [Suspect]
     Indication: ASTHMA
     Dosage: 1PUFF TWICE PER DAY
     Route: 055
     Dates: start: 20100201
  3. FLOVENT [Concomitant]
  4. INDAPAMIDE [Concomitant]
  5. LISINOPRIL [Concomitant]
  6. DETROL [Concomitant]
  7. SINGULAIR [Concomitant]
  8. FLUTICASONE PROPIONATE [Concomitant]
     Route: 045

REACTIONS (5)
  - DRUG ADMINISTRATION ERROR [None]
  - HYPERTENSION [None]
  - NERVOUSNESS [None]
  - STOMATITIS [None]
  - TREMOR [None]
